FAERS Safety Report 19693856 (Version 1)
Quarter: 2021Q3

REPORT INFORMATION
  Report Type: Other
  Country: EG (occurrence: EG)
  Receive Date: 20210813
  Receipt Date: 20210813
  Transmission Date: 20211014
  Serious: Yes (Other)
  Sender: FDA-Public Use
  Company Number: EG-B.BRAUN MEDICAL INC.-2114970

PATIENT
  Age: 34 Year
  Sex: Female

DRUGS (1)
  1. HEPARIN SODIUM IN DEXTROSE [Suspect]
     Active Substance: HEPARIN SODIUM
     Indication: PROSTHETIC CARDIAC VALVE THROMBOSIS

REACTIONS (3)
  - Vaginal haemorrhage [None]
  - Off label use [None]
  - Exposure during pregnancy [None]
